FAERS Safety Report 20434941 (Version 3)
Quarter: 2025Q3

REPORT INFORMATION
  Report Type: Report from Study
  Country: EG (occurrence: EG)
  Receive Date: 20220206
  Receipt Date: 20250710
  Transmission Date: 20251020
  Serious: Yes (Other)
  Sender: NOVARTIS
  Company Number: EG-NOVARTISPH-NVSC2022EG019319

PATIENT
  Age: 28 Year
  Sex: Female

DRUGS (6)
  1. GILENYA [Suspect]
     Active Substance: FINGOLIMOD HYDROCHLORIDE
     Indication: Multiple sclerosis
     Dosage: 0.5 MG, QD
     Route: 048
     Dates: start: 2018, end: 202003
  2. BONE CARE [Concomitant]
     Active Substance: ATRACTYLODES LANCEA ROOT
     Indication: Product used for unknown indication
     Dosage: UNK UNK, BID
     Route: 048
     Dates: start: 2018
  3. REBIF [Concomitant]
     Active Substance: INTERFERON BETA-1A
     Indication: Multiple sclerosis
     Route: 065
     Dates: start: 20200320
  4. REBIF [Concomitant]
     Active Substance: INTERFERON BETA-1A
     Dosage: 2 DOSAGE FORM, TID
     Route: 065
  5. REBIF [Concomitant]
     Active Substance: INTERFERON BETA-1A
     Dosage: UNK UNK, Q3W,HALF INJECTION AS PER PATIENT
     Route: 065
  6. PANADOL [Concomitant]
     Active Substance: ACETAMINOPHEN
     Indication: Product used for unknown indication
     Route: 065
     Dates: start: 202110

REACTIONS (17)
  - Akinesia [Recovered/Resolved]
  - Multiple sclerosis [Not Recovered/Not Resolved]
  - Diplopia [Recovered/Resolved]
  - Hemiplegia [Recovered/Resolved]
  - White blood cell count increased [Unknown]
  - Red blood cell count decreased [Unknown]
  - Haemoglobin decreased [Unknown]
  - Vitreous floaters [Recovered/Resolved]
  - Gait disturbance [Not Recovered/Not Resolved]
  - Tremor [Not Recovered/Not Resolved]
  - Grip strength decreased [Not Recovered/Not Resolved]
  - Dyskinesia [Not Recovered/Not Resolved]
  - Diplopia [Recovered/Resolved]
  - Vitreous floaters [Recovered/Resolved]
  - Anaemia [Not Recovered/Not Resolved]
  - Memory impairment [Not Recovered/Not Resolved]
  - Injection site swelling [Not Recovered/Not Resolved]

NARRATIVE: CASE EVENT DATE: 20200501
